FAERS Safety Report 4901480-5 (Version None)
Quarter: 2006Q1

REPORT INFORMATION
  Report Type: 
  Country: None (occurrence: None)
  Receive Date: 20060201
  Receipt Date: 20060201
  Transmission Date: 20060701
  Serious: Yes (Hospitalization)
  Sender: FDA-Public Use
  Company Number: None

PATIENT
  Age: 62 Year
  Sex: Male

DRUGS (2)
  1. WARFARIN 10 MG [Suspect]
     Indication: DEEP VEIN THROMBOSIS
     Dosage: 10 MG DAILY PO
     Route: 048
     Dates: start: 20050926, end: 20050930
  2. ENOXAPARIN SODIUM [Suspect]
     Indication: DEEP VEIN THROMBOSIS
     Dosage: 10 MG DAILY PO
     Route: 048
     Dates: start: 20050926, end: 20050930

REACTIONS (4)
  - ANAEMIA [None]
  - HAEMATURIA [None]
  - INTERNATIONAL NORMALISED RATIO DECREASED [None]
  - PULMONARY EMBOLISM [None]
